FAERS Safety Report 5646530-6 (Version None)
Quarter: 2008Q1

REPORT INFORMATION
  Report Type: 
  Country: None (occurrence: None)
  Receive Date: 20080303
  Receipt Date: 20080220
  Transmission Date: 20080703
  Serious: Yes (Other)
  Sender: FDA-Public Use
  Company Number: PHBS2007BR20130

PATIENT
  Age: 25 Year
  Sex: Male
  Weight: 146 kg

DRUGS (4)
  1. SANDOSTATIN LAR [Suspect]
     Indication: PANCREATIC DISORDER
     Dosage: UNK, EVERY 28 DAYS
     Route: 030
     Dates: start: 20070801
  2. PROGLYCEM [Suspect]
     Indication: HYPOGLYCAEMIA
     Dosage: 100 MG, BID
     Dates: start: 20070801
  3. PREDNISONE TAB [Suspect]
     Dosage: 5 ML, BID
  4. HYDROCHLOROTHIAZIDE [Suspect]
     Indication: DIURETIC THERAPY
     Dosage: 25MG
     Dates: start: 20070801

REACTIONS (3)
  - DIARRHOEA [None]
  - LACTOSE INTOLERANCE [None]
  - WEIGHT INCREASED [None]
